FAERS Safety Report 24281298 (Version 5)
Quarter: 2024Q4

REPORT INFORMATION
  Report Type: Spontaneous
  Country: ES (occurrence: ES)
  Receive Date: 20240904
  Receipt Date: 20241004
  Transmission Date: 20250114
  Serious: Yes (Hospitalization, Other)
  Sender: MYLAN
  Company Number: ES-MYLANLABS-2024M1080279

PATIENT
  Age: 68 Year
  Sex: Male
  Weight: 90.6 kg

DRUGS (11)
  1. ATORVASTATIN [Suspect]
     Active Substance: ATORVASTATIN
     Indication: Hypercholesterolaemia
     Dosage: 40 MILLIGRAM
     Route: 048
  2. ENCORAFENIB [Suspect]
     Active Substance: ENCORAFENIB
     Indication: Malignant melanoma
     Dosage: 450 MILLIGRAM, QD
     Route: 048
     Dates: start: 20230518, end: 20240829
  3. BINIMETINIB [Suspect]
     Active Substance: BINIMETINIB
     Indication: Malignant melanoma
     Dosage: 45 MILLIGRAM, BID
     Route: 048
     Dates: start: 20230518, end: 20240829
  4. JANUVIA [Suspect]
     Active Substance: SITAGLIPTIN PHOSPHATE
     Indication: Type 2 diabetes mellitus
     Dosage: 50 MILLIGRAM
     Route: 048
  5. BASAGLAR [Suspect]
     Active Substance: INSULIN GLARGINE
     Indication: Type 2 diabetes mellitus
     Dosage: 34 MILLIGRAM (PEN, DISPOSABLE)
     Route: 058
  6. JANUVIA [Suspect]
     Active Substance: SITAGLIPTIN PHOSPHATE
     Indication: Type 2 diabetes mellitus
     Dosage: 50 MILLIGRAM
     Route: 048
  7. DEXKETOPROFEN [Suspect]
     Active Substance: DEXKETOPROFEN
     Indication: Pain
     Dosage: 25 MILLIGRAM
     Route: 048
  8. METFORMIN [Suspect]
     Active Substance: METFORMIN HYDROCHLORIDE
     Indication: Type 2 diabetes mellitus
     Dosage: 1000 MILLIGRAM
     Route: 048
  9. PEMBROLIZUMAB [Suspect]
     Active Substance: PEMBROLIZUMAB
     Indication: Malignant melanoma
     Dosage: 200 MILLIGRAM, 3XW (EVERY 3 WEEKS)
     Route: 042
     Dates: start: 20230518, end: 20240829
  10. BINIMETINIB [Suspect]
     Active Substance: BINIMETINIB
     Indication: Malignant melanoma
     Dosage: UNK, BID (EVERY 12 HOURS)
     Route: 048
     Dates: start: 20230518, end: 20240829
  11. ENCORAFENIB [Suspect]
     Active Substance: ENCORAFENIB

REACTIONS (3)
  - Bone cancer [Unknown]
  - Hydrocephalus [Recovering/Resolving]
  - Back pain [Recovering/Resolving]

NARRATIVE: CASE EVENT DATE: 20240817
